FAERS Safety Report 5349057-4 (Version None)
Quarter: 2007Q2

REPORT INFORMATION
  Report Type: 
  Country: None (occurrence: None)
  Receive Date: 20070607
  Receipt Date: 20070601
  Transmission Date: 20071010
  Serious: Yes (Hospitalization)
  Sender: FDA-Public Use
  Company Number: DE-BAYER-200710220BVD

PATIENT
  Sex: Male

DRUGS (2)
  1. VARDENAFIL [Suspect]
  2. SPASMEX [Concomitant]

REACTIONS (4)
  - EPISTAXIS [None]
  - GASTRIC HAEMORRHAGE [None]
  - HEPARIN-INDUCED THROMBOCYTOPENIA [None]
  - PHARYNGEAL HAEMORRHAGE [None]
